FAERS Safety Report 5356506-4 (Version None)
Quarter: 2007Q2

REPORT INFORMATION
  Report Type: 
  Country: None (occurrence: None)
  Receive Date: 20070530
  Receipt Date: 20070111
  Transmission Date: 20071010
  Serious: Yes (Hospitalization, Other)
  Sender: FDA-Public Use
  Company Number: US200609003708

PATIENT
  Age: 54 Year
  Sex: Female
  Weight: 111.1 kg

DRUGS (6)
  1. ZYPREXA [Suspect]
     Indication: INSOMNIA
     Dosage: DAILY (1/D), ORAL
     Route: 048
     Dates: start: 20030117, end: 20040901
  2. INSULIN HUMAN (INSULIN HUMAN) [Concomitant]
  3. QUETIAPINE FUMARATE [Concomitant]
  4. MIRTAZAPINE [Concomitant]
  5. SERTRALINE [Concomitant]
  6. CENESTIN [Concomitant]

REACTIONS (3)
  - BLOOD PRESSURE [None]
  - CARDIAC FAILURE CONGESTIVE [None]
  - DIABETES MELLITUS [None]
